FAERS Safety Report 24570926 (Version 6)
Quarter: 2025Q2

REPORT INFORMATION
  Report Type: Report from Study
  Country: US (occurrence: US)
  Receive Date: 20241101
  Receipt Date: 20250611
  Transmission Date: 20250717
  Serious: Yes (Hospitalization, Other)
  Sender: UCB
  Company Number: US-UCBSA-2024049910

PATIENT
  Sex: Female
  Weight: 80.2 kg

DRUGS (3)
  1. FINTEPLA [Suspect]
     Active Substance: FENFLURAMINE
     Indication: Lennox-Gastaut syndrome
     Dosage: 5.7 MILLILITER, 2X/DAY (BID)
     Route: 048
     Dates: start: 20220702
  2. FINTEPLA [Suspect]
     Active Substance: FENFLURAMINE
     Dosage: 5.7 MILLILITER, 2X/DAY (BID)
     Route: 048
     Dates: start: 20220706
  3. FINTEPLA [Suspect]
     Active Substance: FENFLURAMINE

REACTIONS (5)
  - Seizure [Recovered/Resolved]
  - Pneumonia [Recovered/Resolved]
  - Hospitalisation [Not Recovered/Not Resolved]
  - Left ventricular dysfunction [Not Recovered/Not Resolved]
  - Left atrial enlargement [Not Recovered/Not Resolved]

NARRATIVE: CASE EVENT DATE: 20240101
